FAERS Safety Report 18702150 (Version 1)
Quarter: 2021Q1

REPORT INFORMATION
  Report Type: Spontaneous
  Country: US (occurrence: US)
  Receive Date: 20210105
  Receipt Date: 20210105
  Transmission Date: 20210419
  Serious: Yes (Hospitalization)
  Sender: FDA-Public Use
  Company Number: US-STRIDES ARCOLAB LIMITED-2020SP016612

PATIENT
  Age: 59 Year
  Sex: Female

DRUGS (2)
  1. LOSARTAN. [Suspect]
     Active Substance: LOSARTAN
     Indication: HYPERTENSION
     Dosage: UNK
     Route: 065
  2. LOSARTAN. [Suspect]
     Active Substance: LOSARTAN
     Indication: MICROALBUMINURIA

REACTIONS (8)
  - Excessive granulation tissue [Recovered/Resolved]
  - Acanthosis [Recovered/Resolved]
  - Fibrosis [Recovered/Resolved]
  - Dermatitis [Recovered/Resolved]
  - Skin mass [Recovered/Resolved]
  - Sprue-like enteropathy [Recovered/Resolved]
  - Skin ulcer [Recovered/Resolved]
  - Hyperkeratosis [Recovered/Resolved]
